FAERS Safety Report 12522731 (Version 2)
Quarter: 2016Q3

REPORT INFORMATION
  Report Type: Report from Study
  Country: FI (occurrence: FI)
  Receive Date: 20160701
  Receipt Date: 20160706
  Transmission Date: 20161109
  Serious: Yes (Hospitalization)
  Sender: FDA-Public Use
  Company Number: FI-ABBVIE-16P-055-1662710-00

PATIENT
  Age: 72 Year
  Sex: Female

DRUGS (9)
  1. DUODOPA [Suspect]
     Active Substance: CARBIDOPA\LEVODOPA
     Indication: PARKINSON^S DISEASE
     Route: 050
     Dates: start: 20160608, end: 20160615
  2. SIFROL [Concomitant]
     Active Substance: PRAMIPEXOLE
     Dosage: IN THE EVENING
  3. MAREVAN [Concomitant]
     Active Substance: WARFARIN SODIUM
     Indication: PRODUCT USED FOR UNKNOWN INDICATION
  4. AMLODIPIN [Concomitant]
     Active Substance: AMLODIPINE BESYLATE
     Indication: PRODUCT USED FOR UNKNOWN INDICATION
  5. DUODOPA [Suspect]
     Active Substance: CARBIDOPA\LEVODOPA
     Route: 050
     Dates: start: 20160615
  6. DUODOPA [Suspect]
     Active Substance: CARBIDOPA\LEVODOPA
     Route: 050
     Dates: start: 20160622
  7. ARCOXIA [Concomitant]
     Active Substance: ETORICOXIB
     Indication: PRODUCT USED FOR UNKNOWN INDICATION
     Dosage: ONCE PER DAY, ALMOST EVERY DAY
  8. SIFROL [Concomitant]
     Active Substance: PRAMIPEXOLE
     Indication: RESTLESS LEGS SYNDROME
     Dosage: IN THE MORNING
  9. KLEXANE [Concomitant]
     Active Substance: ENOXAPARIN
     Indication: PRODUCT USED FOR UNKNOWN INDICATION

REACTIONS (13)
  - Clumsiness [Unknown]
  - Device difficult to use [Unknown]
  - Underdose [Unknown]
  - Stoma site infection [Unknown]
  - Muscular weakness [Not Recovered/Not Resolved]
  - Abdominal pain upper [Recovering/Resolving]
  - Stoma site pain [Recovering/Resolving]
  - Stoma site inflammation [Recovering/Resolving]
  - C-reactive protein increased [Unknown]
  - Stoma site discharge [Recovering/Resolving]
  - Drug ineffective [Not Recovered/Not Resolved]
  - Device connection issue [Recovered/Resolved]
  - Stoma site odour [Recovering/Resolving]

NARRATIVE: CASE EVENT DATE: 201606
